FAERS Safety Report 25775556 (Version 1)
Quarter: 2025Q3

REPORT INFORMATION
  Report Type: Spontaneous
  Country: EU (occurrence: EU)
  Receive Date: 20250909
  Receipt Date: 20250909
  Transmission Date: 20251021
  Serious: Yes (Life-Threatening, Hospitalization, Other)
  Sender: GLAXOSMITHKLINE
  Company Number: None

PATIENT
  Age: 28 Year
  Sex: Female

DRUGS (2)
  1. WELLBUTRIN [Suspect]
     Active Substance: BUPROPION HYDROCHLORIDE
     Indication: Attention deficit hyperactivity disorder
     Dosage: UNK, QD(THE PATIENT TOOK THE LOWEST DOSE)
  2. LAMICTAL [Concomitant]
     Active Substance: LAMOTRIGINE
     Indication: Bipolar II disorder
     Dosage: 200 MG, QD(200 MG DAILY)
     Route: 065

REACTIONS (3)
  - Suicidal ideation [Recovering/Resolving]
  - Suicide attempt [Recovering/Resolving]
  - Depression [Recovering/Resolving]

NARRATIVE: CASE EVENT DATE: 20250530
